FAERS Safety Report 14589736 (Version 1)
Quarter: 2018Q1

REPORT INFORMATION
  Report Type: Spontaneous
  Country: US (occurrence: US)
  Receive Date: 20180302
  Receipt Date: 20180302
  Transmission Date: 20180509
  Serious: No
  Sender: FDA-Public Use
  Company Number: US-009507513-1802USA009856

PATIENT
  Age: 43 Year
  Sex: Female

DRUGS (2)
  1. NUVARING [Suspect]
     Active Substance: ETHINYL ESTRADIOL\ETONOGESTREL
     Indication: ENDOMETRIAL ABLATION
     Dosage: 2 MG, EVERY THREE MONTHS
     Route: 067
     Dates: start: 201707, end: 2017
  2. NUVARING [Suspect]
     Active Substance: ETHINYL ESTRADIOL\ETONOGESTREL
     Dosage: 2 MG, ONCE EVERY THREE MONTHS
     Route: 067
     Dates: start: 20171114, end: 20180126

REACTIONS (11)
  - Product quality issue [Unknown]
  - Migraine [Recovered/Resolved]
  - Product use in unapproved indication [Unknown]
  - Inappropriate schedule of drug administration [Unknown]
  - Headache [Recovering/Resolving]
  - Dysmenorrhoea [Recovering/Resolving]
  - Muscle spasms [Recovering/Resolving]
  - Blood oestrogen decreased [Not Recovered/Not Resolved]
  - Incorrect drug administration duration [Unknown]
  - Vaginal haemorrhage [Recovering/Resolving]
  - Feeling abnormal [Unknown]

NARRATIVE: CASE EVENT DATE: 201707
